FAERS Safety Report 7202094-7 (Version None)
Quarter: 2010Q4

REPORT INFORMATION
  Report Type: 
  Country: None (occurrence: None)
  Receive Date: 20101229
  Receipt Date: 20101220
  Transmission Date: 20110411
  Serious: Yes (Death)
  Sender: FDA-Public Use
  Company Number: JP-AMGEN-JPNCT2010006073

PATIENT

DRUGS (8)
  1. PANITUMUMAB [Suspect]
     Indication: COLORECTAL CANCER
     Dosage: 6 MG/KG, Q2WK
     Route: 041
     Dates: start: 20100726, end: 20101005
  2. PANITUMUMAB [Suspect]
     Dosage: 5 MG/KG, Q2WK
     Route: 041
     Dates: start: 20100816, end: 20100816
  3. PANITUMUMAB [Suspect]
     Dosage: 4 MG/KG, Q2WK
     Route: 041
     Dates: start: 20100906
  4. TOPOTECAN [Suspect]
     Indication: COLORECTAL CANCER
     Route: 041
     Dates: start: 20100726
  5. FLUOROURACIL [Suspect]
     Indication: COLORECTAL CANCER
     Route: 040
     Dates: start: 20100726
  6. FLUOROURACIL [Suspect]
     Route: 041
     Dates: start: 20100726
  7. CALCIUM LEVOFOLINATE [Suspect]
     Indication: COLORECTAL CANCER
     Route: 041
     Dates: start: 20100726
  8. CORTICOSTEROIDS [Concomitant]
     Indication: PROPHYLAXIS
     Route: 065

REACTIONS (3)
  - DIARRHOEA [None]
  - RESPIRATORY FAILURE [None]
  - STOMATITIS [None]
